FAERS Safety Report 15419220 (Version 1)
Quarter: 2018Q3

REPORT INFORMATION
  Report Type: Spontaneous
  Country: AR (occurrence: AR)
  Receive Date: 20180924
  Receipt Date: 20180924
  Transmission Date: 20181010
  Serious: Yes (Hospitalization)
  Sender: FDA-Public Use
  Company Number: AR-PFIZER INC-2018378735

PATIENT
  Age: 63 Year
  Sex: Female

DRUGS (1)
  1. IBRANCE [Suspect]
     Active Substance: PALBOCICLIB
     Indication: BREAST CANCER METASTATIC
     Dosage: 100 MG, CYCLIC (DAILY, 3X1 SCHEME)
     Dates: start: 20161207

REACTIONS (6)
  - Arthralgia [Unknown]
  - Neoplasm progression [Unknown]
  - Femur fracture [Unknown]
  - Pain in extremity [Unknown]
  - Gait disturbance [Unknown]
  - Osteoporosis [Unknown]

NARRATIVE: CASE EVENT DATE: 201807
